FAERS Safety Report 8474240-9 (Version None)
Quarter: 2012Q2

REPORT INFORMATION
  Report Type: 
  Country: None (occurrence: None)
  Receive Date: 20120628
  Receipt Date: 20120619
  Transmission Date: 20120825
  Serious: Yes (Hospitalization, Other)
  Sender: FDA-Public Use
  Company Number: US-BAYER-2012-053473

PATIENT
  Age: 25 Year
  Sex: Female
  Weight: 56.689 kg

DRUGS (4)
  1. DROSPIRENONE AND ETHINYL ESTRADIOL [Suspect]
     Indication: CONTRACEPTION
     Dosage: UNK
     Dates: start: 20080722, end: 20100517
  2. NSAID'S [Concomitant]
     Dosage: UNK UNK, PRN
  3. YASMIN [Suspect]
     Indication: CONTRACEPTION
     Dosage: UNK
     Dates: start: 20071009, end: 20080711
  4. ACETAMINOPHEN [Concomitant]

REACTIONS (6)
  - VIITH NERVE PARALYSIS [None]
  - INJURY [None]
  - PAIN [None]
  - CEREBROVASCULAR ACCIDENT [None]
  - HEADACHE [None]
  - INTRACARDIAC THROMBUS [None]
